FAERS Safety Report 5035291-X (Version None)
Quarter: 2006Q2

REPORT INFORMATION
  Report Type: 
  Country: None (occurrence: None)
  Receive Date: 20060627
  Receipt Date: 20060615
  Transmission Date: 20061013
  Serious: Yes (Life-Threatening, Other)
  Sender: FDA-Public Use
  Company Number: JP-BRISTOL-MYERS SQUIBB COMPANY-13414248

PATIENT
  Age: 74 Year
  Sex: Female

DRUGS (2)
  1. TAXOL [Suspect]
     Indication: OVARIAN CANCER
     Route: 041
  2. PARAPLATIN [Suspect]
     Indication: OVARIAN CANCER
     Route: 041

REACTIONS (6)
  - APLASTIC ANAEMIA [None]
  - BONE MARROW FAILURE [None]
  - DYSGEUSIA [None]
  - HYPOAESTHESIA ORAL [None]
  - NEUTROPHIL COUNT DECREASED [None]
  - PLATELET COUNT DECREASED [None]
